FAERS Safety Report 22102834 (Version 1)
Quarter: 2023Q1

REPORT INFORMATION
  Report Type: Spontaneous
  Country: US (occurrence: US)
  Receive Date: 20230316
  Receipt Date: 20230316
  Transmission Date: 20230418
  Serious: Yes (Other)
  Sender: FDA-Public Use
  Company Number: US-OTSUKA-2023_006554

PATIENT
  Age: 68 Year
  Sex: Male

DRUGS (2)
  1. ABILIFY MAINTENA [Suspect]
     Active Substance: ARIPIPRAZOLE
     Indication: Product used for unknown indication
     Dosage: 400 MG
     Route: 065
  2. ABILIFY MAINTENA [Suspect]
     Active Substance: ARIPIPRAZOLE
     Dosage: 300 MG
     Route: 065

REACTIONS (6)
  - Craniocerebral injury [Unknown]
  - Apraxia [Recovering/Resolving]
  - Slow speech [Recovering/Resolving]
  - Feeling abnormal [Recovering/Resolving]
  - Amnesia [Recovering/Resolving]
  - Gait disturbance [Recovering/Resolving]
